FAERS Safety Report 14754091 (Version 4)
Quarter: 2019Q4

REPORT INFORMATION
  Report Type: Spontaneous
  Country: GB (occurrence: IT)
  Receive Date: 20180412
  Receipt Date: 20191002
  Transmission Date: 20200122
  Serious: Yes (Hospitalization, Other)
  Sender: FDA-Public Use
  Company Number: GB-SA-2018SA094258

PATIENT
  Age: 85 Year
  Sex: Female

DRUGS (14)
  1. QUETIAPINE FUMARATE. [Suspect]
     Active Substance: QUETIAPINE FUMARATE
     Dosage: 25 MG,BID
     Route: 048
  2. LEVOTHYROXINE SODIUM. [Suspect]
     Active Substance: LEVOTHYROXINE SODIUM
     Indication: HYPOTHYROIDISM
     Dosage: 50 UG,QD
     Route: 048
  3. CLOPIDOGREL BISULFATE. [Interacting]
     Active Substance: CLOPIDOGREL BISULFATE
     Dosage: 75 MG,BID
     Route: 048
  4. BUPROPION HYDROCHLORIDE. [Interacting]
     Active Substance: BUPROPION HYDROCHLORIDE
     Dosage: 150 MG,QD
     Route: 048
  5. CARVEDILOL. [Interacting]
     Active Substance: CARVEDILOL
     Dosage: 13 MG,QD
     Route: 048
  6. OMEPRAZOLE. [Interacting]
     Active Substance: OMEPRAZOLE
     Dosage: 20 MG,QD
     Route: 048
  7. HYDROCHLOROTHIAZIDE. [Suspect]
     Active Substance: HYDROCHLOROTHIAZIDE
     Dosage: 12.5 MG,QD
     Route: 048
  8. PAROXETINE HYDROCHLORIDE. [Interacting]
     Active Substance: PAROXETINE HYDROCHLORIDE
     Dosage: 5 MG,BID
     Route: 048
  9. CARVEDILOL. [Interacting]
     Active Substance: CARVEDILOL
     Dosage: 12.5 MG,QD
     Route: 048
  10. VENLAFAXINE HYDROCHLORIDE. [Interacting]
     Active Substance: VENLAFAXINE HYDROCHLORIDE
     Dosage: 150 MG,QD
     Route: 048
  11. IRBESARTAN. [Suspect]
     Active Substance: IRBESARTAN
     Dosage: 300 MG,QD
     Route: 048
  12. IRON [Suspect]
     Active Substance: IRON
     Dosage: 80 MG,QD
     Route: 048
  13. HYDROCHLOROTHIAZIDE/IRBESARTAN [Suspect]
     Active Substance: HYDROCHLOROTHIAZIDE\IRBESARTAN
     Dosage: UNK UNK,QD
     Route: 048
  14. ATORVASTATIN [Suspect]
     Active Substance: ATORVASTATIN
     Dosage: 10 MG,BID
     Route: 048

REACTIONS (6)
  - Fall [Unknown]
  - Drug interaction [Unknown]
  - Spinal fracture [Unknown]
  - Labelled drug-drug interaction medication error [Unknown]
  - Hypotension [Unknown]
  - Dehydration [Unknown]
